FAERS Safety Report 8264639-8 (Version None)
Quarter: 2012Q2

REPORT INFORMATION
  Report Type: 
  Country: None (occurrence: None)
  Receive Date: 20120406
  Receipt Date: 20120326
  Transmission Date: 20120825
  Serious: Yes (Other)
  Sender: FDA-Public Use
  Company Number: JP-ELI_LILLY_AND_COMPANY-JP201203002029

PATIENT
  Age: 65 Year

DRUGS (5)
  1. ALIMTA [Suspect]
     Indication: LUNG ADENOCARCINOMA
     Route: 042
  2. CARBOPLATIN [Concomitant]
     Indication: LUNG ADENOCARCINOMA
  3. VITAMIN B-12 [Concomitant]
  4. BEVACIZUMAB [Concomitant]
     Indication: LUNG ADENOCARCINOMA
  5. FOLIC ACID [Concomitant]

REACTIONS (1)
  - INTESTINAL PERFORATION [None]
